FAERS Safety Report 10460851 (Version 1)
Quarter: 2014Q3

REPORT INFORMATION
  Report Type: Spontaneous
  Country: US (occurrence: None)
  Receive Date: 20140917
  Receipt Date: 20140917
  Transmission Date: 20150326
  Serious: Yes (Hospitalization)
  Sender: FDA-Public Use
  Company Number: None

PATIENT
  Age: 47 Year
  Sex: Male

DRUGS (1)
  1. IMMUNE GLOBULIN HUMAN [Suspect]
     Active Substance: HUMAN IMMUNOGLOBULIN G
     Route: 042
     Dates: start: 20140826, end: 20140909

REACTIONS (3)
  - Haemolytic transfusion reaction [None]
  - Anaemia [None]
  - Product quality issue [None]

NARRATIVE: CASE EVENT DATE: 20140909
